FAERS Safety Report 12162480 (Version 1)
Quarter: 2016Q1

REPORT INFORMATION
  Report Type: Other
  Country: DE (occurrence: DE)
  Receive Date: 20160309
  Receipt Date: 20160309
  Transmission Date: 20160526
  Serious: Yes (Disabling, Other)
  Sender: FDA-Public Use
  Company Number: DE-ASTELLAS-2016US007851

PATIENT
  Age: 53 Year
  Sex: Female
  Weight: 62 kg

DRUGS (1)
  1. PROTOPIC [Suspect]
     Active Substance: TACROLIMUS
     Indication: DERMATITIS ATOPIC
     Dosage: UNK, TWICE IN DAY
     Route: 065
     Dates: start: 20150110, end: 201504

REACTIONS (6)
  - Application site swelling [Recovered/Resolved with Sequelae]
  - Stress [Unknown]
  - Anxiety [Unknown]
  - Hyperaesthesia [Unknown]
  - Rosacea [Unknown]
  - Drug ineffective [Unknown]

NARRATIVE: CASE EVENT DATE: 201602
